FAERS Safety Report 7999239-8 (Version None)
Quarter: 2011Q4

REPORT INFORMATION
  Report Type: 
  Country: None (occurrence: None)
  Receive Date: 20111221
  Receipt Date: 20111216
  Transmission Date: 20120403
  Serious: Yes (Death)
  Sender: FDA-Public Use
  Company Number: CA-CELGENEUS-028-21880-11122213

PATIENT
  Sex: Male

DRUGS (6)
  1. OXYCODONE HCL [Concomitant]
     Route: 065
  2. REVLIMID [Suspect]
     Indication: MULTIPLE MYELOMA
     Dosage: 10 MILLIGRAM
     Route: 048
  3. FUROSEMIDE [Concomitant]
     Route: 065
  4. METHADONE HCL [Concomitant]
     Route: 065
  5. LYRICA [Concomitant]
     Route: 065
  6. NORTRIPTYLINE HCL [Concomitant]
     Route: 065

REACTIONS (1)
  - DEATH [None]
